FAERS Safety Report 7039856-5 (Version None)
Quarter: 2010Q4

REPORT INFORMATION
  Report Type: 
  Country: None (occurrence: None)
  Receive Date: 20101012
  Receipt Date: 20101004
  Transmission Date: 20110411
  Serious: Yes (Life-Threatening, Hospitalization, Disabling)
  Sender: FDA-Public Use
  Company Number: GB-AMGEN-QUU427317

PATIENT
  Sex: Male
  Weight: 85.7 kg

DRUGS (7)
  1. ENBREL [Suspect]
     Indication: ANKYLOSING SPONDYLITIS
     Route: 058
     Dates: start: 20070831, end: 20100706
  2. ZOTON FASTAB [Concomitant]
     Route: 048
  3. GABAPENTIN [Concomitant]
     Route: 048
  4. AMITRIPTYLINE [Concomitant]
     Route: 048
  5. PREGABALIN [Concomitant]
     Route: 048
  6. PARACETAMOL [Concomitant]
     Route: 048
  7. CODEINE PHOSPHATE [Concomitant]
     Dosage: 30 - 60 MG QDS
     Route: 048

REACTIONS (8)
  - ASPIRATION [None]
  - BRAIN CONTUSION [None]
  - CEREBRAL HAEMORRHAGE [None]
  - FALL [None]
  - GENITAL HERPES [None]
  - HEMIPLEGIA [None]
  - RHABDOMYOLYSIS [None]
  - TRAUMATIC BRAIN INJURY [None]
